FAERS Safety Report 14822390 (Version 1)
Quarter: 2018Q2

REPORT INFORMATION
  Report Type: Spontaneous
  Country: AR (occurrence: AR)
  Receive Date: 20180427
  Receipt Date: 20180427
  Transmission Date: 20180711
  Serious: Yes (Hospitalization, Other)
  Sender: FDA-Public Use
  Company Number: AR-PFIZER INC-2018171638

PATIENT
  Age: 67 Year
  Sex: Female

DRUGS (1)
  1. IBRANCE [Suspect]
     Active Substance: PALBOCICLIB
     Indication: BREAST CANCER METASTATIC
     Dosage: 125 MG, CYCLIC (3X1 SCHEDULE)
     Dates: start: 20170509

REACTIONS (3)
  - Glaucoma [Recovering/Resolving]
  - Ocular discomfort [Unknown]
  - Blindness [Unknown]

NARRATIVE: CASE EVENT DATE: 201711
